FAERS Safety Report 23982849 (Version 1)
Quarter: 2024Q2

REPORT INFORMATION
  Report Type: Spontaneous
  Country: US (occurrence: US)
  Receive Date: 20240617
  Receipt Date: 20240617
  Transmission Date: 20240716
  Serious: Yes (Hospitalization)
  Sender: FDA-Public Use
  Company Number: US-OPKO PHARMACEUTICALS, LLC.-2024OPK00131

PATIENT
  Sex: Female
  Weight: 81.633 kg

DRUGS (18)
  1. RAYALDEE [Suspect]
     Active Substance: CALCIFEDIOL
     Indication: Vitamin D deficiency
     Dosage: 30 MCG, QD
     Route: 048
     Dates: start: 20211120
  2. RAYALDEE [Suspect]
     Active Substance: CALCIFEDIOL
     Indication: Chronic kidney disease
  3. RAYALDEE [Suspect]
     Active Substance: CALCIFEDIOL
     Indication: Hyperparathyroidism secondary
  4. TYLENOL ARTHRITIS PAIN [Concomitant]
     Active Substance: ACETAMINOPHEN
     Indication: Pain
     Dosage: UNK, PRN
     Route: 048
  5. TOCOPHEROL [Concomitant]
     Active Substance: TOCOPHEROL
     Dosage: 400 INTERNATIONAL UNIT, QD
     Route: 048
  6. CRANBERRY 10000+ [Concomitant]
     Dosage: 1000 MG, BID
     Route: 048
  7. CYANOCOBALAMIN [Concomitant]
     Active Substance: CYANOCOBALAMIN
     Dosage: 2000 MG, QD
  8. KERENDIA [Concomitant]
     Active Substance: FINERENONE
     Dosage: 10 MG, QD
     Route: 048
  9. LASIX [Concomitant]
     Active Substance: FUROSEMIDE
     Indication: Swelling
     Dosage: 60 MG, QD
     Route: 048
  10. ANTIVERT [Concomitant]
     Active Substance: MECLIZINE HYDROCHLORIDE
     Dosage: 25 MG, QD
     Route: 048
  11. NOVOLOG [Concomitant]
     Active Substance: INSULIN ASPART
     Dosage: UNK
  12. TOUJEO [Concomitant]
     Active Substance: INSULIN GLARGINE
     Dosage: 60 UT, QD
  13. IMDUR [Concomitant]
     Active Substance: ISOSORBIDE MONONITRATE
     Dosage: 30 MG, QD
     Route: 048
  14. PREVACID [Concomitant]
     Active Substance: LANSOPRAZOLE
     Dosage: 30 MG, QD
     Route: 048
  15. MAGOX [Concomitant]
     Dosage: 400 MG, QD
     Route: 048
  16. BYSTOLIC [Concomitant]
     Active Substance: NEBIVOLOL HYDROCHLORIDE
     Dosage: 5 MG, QD
     Route: 048
  17. SUPER OMEGA 3 [FISH OIL] [Concomitant]
     Dosage: 1000 MG, QD
     Route: 048
  18. DIOVAN [Concomitant]
     Active Substance: VALSARTAN
     Dosage: 40 MG, QD
     Route: 048

REACTIONS (1)
  - Fall [Recovered/Resolved]

NARRATIVE: CASE EVENT DATE: 20240101
